FAERS Safety Report 8143162-5 (Version None)
Quarter: 2012Q1

REPORT INFORMATION
  Report Type: 
  Country: None (occurrence: None)
  Receive Date: 20120217
  Receipt Date: 20120213
  Transmission Date: 20120608
  Serious: Yes (Other)
  Sender: FDA-Public Use
  Company Number: US-PFIZER INC-2012039087

PATIENT
  Sex: Female
  Weight: 136 kg

DRUGS (5)
  1. LYRICA [Suspect]
     Indication: NEUROPATHY PERIPHERAL
  2. LOVASTATIN [Concomitant]
     Indication: BLOOD CHOLESTEROL INCREASED
     Dosage: 40 MG, DAILY
  3. LYRICA [Suspect]
     Indication: FIBROMYALGIA
     Dosage: 150 MG, 3X/DAY
     Route: 048
     Dates: start: 20110101
  4. HYDROCODONE [Concomitant]
     Indication: BACK PAIN
     Dosage: ^10/325 MG^ AS NEEDED
  5. IBUPROFEN [Concomitant]
     Dosage: UNK

REACTIONS (1)
  - VISUAL IMPAIRMENT [None]
